FAERS Safety Report 6473383-9 (Version None)
Quarter: 2009Q4

REPORT INFORMATION
  Report Type: 
  Country: None (occurrence: None)
  Receive Date: 20091204
  Receipt Date: 20090204
  Transmission Date: 20100525
  Serious: Yes (Life-Threatening, Hospitalization, Other)
  Sender: FDA-Public Use
  Company Number: BE-ELI_LILLY_AND_COMPANY-BE200811006184

PATIENT
  Sex: Female
  Weight: 115 kg

DRUGS (11)
  1. BYETTA [Suspect]
     Indication: TYPE 2 DIABETES MELLITUS
     Dosage: 5 UG, 2/D
     Route: 058
     Dates: start: 20080928, end: 20081004
  2. GLUCOPHAGE [Concomitant]
     Indication: DIABETES MELLITUS
     Dosage: UNK, UNKNOWN
     Route: 065
     Dates: end: 20081004
  3. NOVONORM [Concomitant]
     Indication: DIABETES MELLITUS
     Dosage: UNK, UNKNOWN
     Route: 065
  4. COAPROVEL [Concomitant]
     Dosage: UNK, UNKNOWN
     Route: 065
  5. BUMEX [Concomitant]
     Dosage: UNK, UNKNOWN
     Route: 065
  6. AMLOR [Concomitant]
     Dosage: UNK, UNKNOWN
     Route: 065
  7. SIMVASTATIN [Concomitant]
     Dosage: UNK, UNKNOWN
     Route: 065
  8. ELTHYRONE [Concomitant]
     Dosage: UNK, UNKNOWN
     Route: 065
  9. TRAZOLAN [Concomitant]
     Dosage: UNK, UNKNOWN
     Route: 065
  10. OMEPRAZOLE [Concomitant]
     Dosage: UNK, UNKNOWN
     Route: 065
  11. RIVOTRIL [Concomitant]
     Dosage: UNK, UNKNOWN
     Route: 065

REACTIONS (5)
  - LACTIC ACIDOSIS [None]
  - METABOLIC ACIDOSIS [None]
  - NAUSEA [None]
  - RENAL FAILURE [None]
  - VOMITING [None]
